FAERS Safety Report 9953291 (Version 2)
Quarter: 2014Q1

REPORT INFORMATION
  Report Type: Report from Study
  Country: US (occurrence: US)
  Receive Date: 20140304
  Receipt Date: 20140304
  Transmission Date: 20141002
  Serious: No
  Sender: FDA-Public Use
  Company Number: US-ABBVIE-13P-163-1067870-00

PATIENT
  Age: 18 Year
  Sex: Female
  Weight: 77.18 kg

DRUGS (8)
  1. HUMIRA [Suspect]
     Indication: CROHN^S DISEASE
     Route: 058
     Dates: start: 20091229, end: 201302
  2. ONDANSETRON [Concomitant]
     Indication: NAUSEA
  3. ZANTAC [Concomitant]
     Indication: GASTROOESOPHAGEAL REFLUX DISEASE
  4. BACTROBAN [Concomitant]
     Indication: PSORIASIS
  5. VITAMIN B [Concomitant]
     Indication: SUPPLEMENTATION THERAPY
  6. BENTYL [Concomitant]
     Indication: IRRITABLE BOWEL SYNDROME
  7. AMITRIPTYLINE [Concomitant]
     Indication: PRODUCT USED FOR UNKNOWN INDICATION
  8. DICYCLOMINE [Concomitant]
     Indication: ABDOMINAL PAIN

REACTIONS (4)
  - Rash generalised [Recovering/Resolving]
  - Psoriasis [Recovering/Resolving]
  - Rash pruritic [Recovering/Resolving]
  - Psoriasis [Not Recovered/Not Resolved]
